FAERS Safety Report 25504377 (Version 6)
Quarter: 2025Q4

REPORT INFORMATION
  Report Type: Spontaneous
  Country: JP (occurrence: JP)
  Receive Date: 20250702
  Receipt Date: 20251124
  Transmission Date: 20260118
  Serious: Yes (Hospitalization, Disabling)
  Sender: AMGEN
  Company Number: JP-AMGEN-JPNSP2025126589

PATIENT
  Age: 77 Year
  Sex: Female
  Weight: 40 kg

DRUGS (2)
  1. EVENITY [Suspect]
     Active Substance: ROMOSOZUMAB-AQQG
     Indication: Osteoporosis
     Dosage: 210 MILLIGRAM, QMO
     Route: 058
     Dates: start: 20250201
  2. Mytear [Concomitant]
     Indication: Lacrimation decreased
     Dosage: 10 DROP, 5 TIMES A DAY

REACTIONS (29)
  - Femoral neck fracture [Recovering/Resolving]
  - Fall [Recovering/Resolving]
  - Blood albumin decreased [Unknown]
  - Albumin globulin ratio decreased [Unknown]
  - Activated partial thromboplastin time prolonged [Unknown]
  - Prothrombin time prolonged [Unknown]
  - Blood alkaline phosphatase increased [Unknown]
  - Blood calcium decreased [Unknown]
  - Blood creatine decreased [Unknown]
  - Blood creatine phosphokinase increased [Unknown]
  - Blood glucose increased [Unknown]
  - Blood lactate dehydrogenase increased [Unknown]
  - Blood potassium decreased [Unknown]
  - Brain natriuretic peptide increased [Unknown]
  - C-reactive protein increased [Unknown]
  - Haematocrit decreased [Unknown]
  - Haemoglobin decreased [Unknown]
  - Mean cell haemoglobin decreased [Unknown]
  - Monocyte percentage increased [Unknown]
  - Protein total decreased [Unknown]
  - Red blood cell count decreased [Unknown]
  - Vitamin D decreased [Unknown]
  - Blood chloride increased [Unknown]
  - Lymphocyte percentage decreased [Unknown]
  - Oxygen saturation increased [Unknown]
  - Glucose urine present [Unknown]
  - PO2 increased [Unknown]
  - Protein urine present [Unknown]
  - Urinary occult blood positive [Unknown]

NARRATIVE: CASE EVENT DATE: 20250619
